FAERS Safety Report 14491724 (Version 1)
Quarter: 2018Q1

REPORT INFORMATION
  Report Type: Spontaneous
  Country: PL (occurrence: PL)
  Receive Date: 20180206
  Receipt Date: 20180206
  Transmission Date: 20180509
  Serious: Yes (Death, Other)
  Sender: FDA-Public Use
  Company Number: PL-009507513-1801POL014132

PATIENT
  Age: 61 Year
  Sex: Male

DRUGS (1)
  1. TEMOZOLOMIDE. [Suspect]
     Active Substance: TEMOZOLOMIDE
     Indication: PITUITARY TUMOUR BENIGN
     Dosage: 320 MG, DAILY  FOR 5 CONSECUTIVE DAYS, 28-DAY CYCLE
     Route: 065

REACTIONS (3)
  - Disease progression [Fatal]
  - Pituitary-dependent Cushing^s syndrome [Fatal]
  - Death [Fatal]
